FAERS Safety Report 6980328-1 (Version None)
Quarter: 2010Q3

REPORT INFORMATION
  Report Type: 
  Country: None (occurrence: None)
  Receive Date: 20100914
  Receipt Date: 20100909
  Transmission Date: 20110219
  Serious: Yes (Other)
  Sender: FDA-Public Use
  Company Number: RU-ROCHE-726594

PATIENT
  Age: 12 Year
  Sex: Male
  Weight: 45 kg

DRUGS (1)
  1. ROCEPHIN [Suspect]
     Indication: PROPHYLAXIS
     Route: 042
     Dates: start: 20100824, end: 20100828

REACTIONS (2)
  - HEADACHE [None]
  - HYPERTENSION [None]
